FAERS Safety Report 4320198-3 (Version None)
Quarter: 2004Q1

REPORT INFORMATION
  Report Type: 
  Country: None (occurrence: None)
  Receive Date: 20040317
  Receipt Date: 20040225
  Transmission Date: 20041129
  Serious: No
  Sender: FDA-Public Use
  Company Number: 003#1#2004-00155

PATIENT

DRUGS (1)
  1. ISOSORBIDE MONONITRATE [Suspect]

REACTIONS (1)
  - CEREBROVASCULAR ACCIDENT [None]
